FAERS Safety Report 6713803-5 (Version None)
Quarter: 2010Q2

REPORT INFORMATION
  Report Type: 
  Country: None (occurrence: None)
  Receive Date: 20100504
  Receipt Date: 20100420
  Transmission Date: 20101027
  Serious: Yes (Other)
  Sender: FDA-Public Use
  Company Number: REF PD132

PATIENT

DRUGS (1)
  1. CETIRIZINE (STRENGTH AND MANUF UNKNOWN) [Suspect]
     Indication: URTICARIA CHRONIC

REACTIONS (3)
  - AUTOIMMUNE DISORDER [None]
  - CONDITION AGGRAVATED [None]
  - URTICARIA CHRONIC [None]
